FAERS Safety Report 8271090-3 (Version None)
Quarter: 2012Q2

REPORT INFORMATION
  Report Type: 
  Country: None (occurrence: None)
  Receive Date: 20120410
  Receipt Date: 20120403
  Transmission Date: 20120825
  Serious: Yes (Other)
  Sender: FDA-Public Use
  Company Number: JP-PFIZER INC-2012084424

PATIENT
  Age: 49 Year
  Sex: Female

DRUGS (3)
  1. LYRICA [Suspect]
     Dosage: UNK
     Route: 048
  2. LEVOTOMIN [Concomitant]
     Dosage: UNK
     Route: 048
  3. ETODOLAC [Concomitant]
     Dosage: UNK
     Route: 048

REACTIONS (5)
  - INTENTIONAL OVERDOSE [None]
  - DELIRIUM [None]
  - HALLUCINATION [None]
  - ALTERED STATE OF CONSCIOUSNESS [None]
  - SUICIDE ATTEMPT [None]
